FAERS Safety Report 5619907-2 (Version None)
Quarter: 2008Q1

REPORT INFORMATION
  Report Type: 
  Country: None (occurrence: None)
  Receive Date: 20080208
  Receipt Date: 20071010
  Transmission Date: 20080703
  Serious: No
  Sender: FDA-Public Use
  Company Number: US-ABBOTT-07P-163-0420244-00

PATIENT
  Sex: Male
  Weight: 77.18 kg

DRUGS (4)
  1. VICODIN [Suspect]
     Indication: TOOTHACHE
  2. VICODIN [Suspect]
     Indication: HEADACHE
  3. BLOOD PRESSURE MEDICATION [Concomitant]
     Indication: HYPERTENSION
     Route: 048
  4. ALPRAZOLAM [Concomitant]
     Indication: ANXIETY
     Route: 048

REACTIONS (2)
  - PLATELET COUNT DECREASED [None]
  - WHITE BLOOD CELL COUNT DECREASED [None]
